FAERS Safety Report 10266150 (Version 1)
Quarter: 2014Q2

REPORT INFORMATION
  Report Type: Spontaneous
  Country: US (occurrence: US)
  Receive Date: 20140627
  Receipt Date: 20140627
  Transmission Date: 20141212
  Serious: Yes (Other)
  Sender: FDA-Public Use
  Company Number: US-B.I. PHARMACEUTICALS,INC./RIDGEFIELD-2014-BI-28386BP

PATIENT
  Sex: Female
  Weight: 58 kg

DRUGS (9)
  1. SPIRIVA [Suspect]
     Indication: CHRONIC OBSTRUCTIVE PULMONARY DISEASE
     Dosage: 18 MCG
     Route: 055
     Dates: start: 2007
  2. ADVAIR [Concomitant]
     Indication: CHRONIC OBSTRUCTIVE PULMONARY DISEASE
     Dosage: STRENGTH: 250 MCG/50 MCG; DAILY DOSE: 250 MCG/50 MCG
     Route: 055
     Dates: start: 1993
  3. SYMBICORT [Concomitant]
     Indication: CHRONIC OBSTRUCTIVE PULMONARY DISEASE
     Route: 055
     Dates: start: 2014, end: 2014
  4. LYRICA [Concomitant]
     Indication: NEURALGIA
     Dosage: 50 MG
     Route: 048
     Dates: start: 201304
  5. ROPINIROLE [Concomitant]
     Indication: RESTLESS LEGS SYNDROME
     Dosage: 0.15 MG
     Route: 048
     Dates: start: 1995
  6. HYDROCHLOROTHIAZIDE [Concomitant]
     Indication: HYPERTENSION
     Dosage: 25 MG
     Route: 048
     Dates: start: 1995
  7. METOPROLOL [Concomitant]
     Indication: ATRIAL FIBRILLATION
     Dosage: 50 MG
     Route: 048
     Dates: start: 201306
  8. OMEPRAZOLE [Concomitant]
     Indication: GASTROOESOPHAGEAL REFLUX DISEASE
     Dosage: 40 MG
     Route: 048
     Dates: start: 2011
  9. NEXIUM [Concomitant]
     Indication: GASTROOESOPHAGEAL REFLUX DISEASE
     Route: 048
     Dates: start: 2011, end: 2011

REACTIONS (7)
  - Small cell lung cancer [Recovered/Resolved]
  - Breast cancer [Recovered/Resolved]
  - Facet joint syndrome [Recovered/Resolved]
  - Back pain [Recovered/Resolved]
  - Abnormal loss of weight [Recovered/Resolved]
  - Body height decreased [Not Recovered/Not Resolved]
  - Contusion [Not Recovered/Not Resolved]
